FAERS Safety Report 23523090 (Version 2)
Quarter: 2024Q1

REPORT INFORMATION
  Report Type: Spontaneous
  Country: JP (occurrence: JP)
  Receive Date: 20240214
  Receipt Date: 20240327
  Transmission Date: 20240410
  Serious: Yes (Death, Other)
  Sender: FDA-Public Use
  Company Number: JP-PHATHOM PHARMACEUTICALS INC.-2024PHT00048

PATIENT
  Age: 41 Year
  Sex: Male

DRUGS (7)
  1. VONOPRAZAN FUMARATE [Suspect]
     Active Substance: VONOPRAZAN FUMARATE
     Indication: Gastrooesophageal reflux disease
     Dosage: 10 MG
     Route: 048
  2. NALMEFENE HYDROCHLORIDE DIHYDRATE [Suspect]
     Active Substance: NALMEFENE HYDROCHLORIDE DIHYDRATE
     Indication: Alcoholism
     Dosage: 10 MG
     Route: 048
  3. FEBUXOSTAT [Concomitant]
     Active Substance: FEBUXOSTAT
  4. FUROSEMIDE [Concomitant]
     Active Substance: FUROSEMIDE
  5. SPIRONOLACTONE [Concomitant]
     Active Substance: SPIRONOLACTONE
  6. AMINO ACIDS, SOURCE UNSPECIFIED [Concomitant]
     Active Substance: AMINO ACIDS, SOURCE UNSPECIFIED
  7. NAUZELIN [Concomitant]
     Active Substance: DOMPERIDONE

REACTIONS (2)
  - Road traffic accident [Fatal]
  - Subarachnoid haemorrhage [Fatal]

NARRATIVE: CASE EVENT DATE: 20231205
